FAERS Safety Report 18115601 (Version 1)
Quarter: 2020Q3

REPORT INFORMATION
  Report Type: Report from Study
  Country: AU (occurrence: AU)
  Receive Date: 20200805
  Receipt Date: 20200805
  Transmission Date: 20201103
  Serious: Yes (Hospitalization, Other)
  Sender: FDA-Public Use
  Company Number: AU-TAKEDA-2020TUS033464

PATIENT
  Age: 69 Year
  Sex: Male

DRUGS (47)
  1. BORTEZOMIB. [Suspect]
     Active Substance: BORTEZOMIB
     Indication: PLASMA CELL MYELOMA
     Dosage: UNK
     Route: 065
  2. COLOXYL WITH SENNA [Concomitant]
     Active Substance: DOCUSATE SODIUM\SENNOSIDES A AND B
     Indication: CONSTIPATION PROPHYLAXIS
     Dosage: UNK
     Route: 048
     Dates: start: 20191113
  3. COLOXYL WITH SENNA [Concomitant]
     Active Substance: DOCUSATE SODIUM\SENNOSIDES A AND B
     Dosage: UNK
     Route: 048
     Dates: start: 20191023, end: 20191023
  4. NEXIUM [Concomitant]
     Active Substance: ESOMEPRAZOLE MAGNESIUM
     Dosage: 80 MILLIGRAM
     Route: 042
     Dates: start: 20191124, end: 20191124
  5. MIDAZOLAM. [Concomitant]
     Active Substance: MIDAZOLAM
     Indication: SEDATIVE THERAPY
     Dosage: 30 MILLIGRAM, QD
     Route: 042
     Dates: start: 20191008, end: 20191008
  6. ZOLEDRONIC ACID [Concomitant]
     Active Substance: ZOLEDRONIC ACID
     Dosage: 4 MILLIGRAM
     Route: 042
     Dates: start: 201904
  7. CALTRATE                           /00944201/ [Concomitant]
     Active Substance: CALCIUM CARBONATE\CHOLECALCIFEROL
     Dosage: UNK
     Route: 065
  8. ONDANSETRON [Concomitant]
     Active Substance: ONDANSETRON
     Dosage: 4 MILLIGRAM
     Route: 042
     Dates: start: 20191021
  9. PARACETAMOL [Concomitant]
     Active Substance: ACETAMINOPHEN
     Dosage: 1 GRAM, QD
     Route: 042
     Dates: start: 20191022, end: 20191022
  10. CLARITHROMYCIN. [Concomitant]
     Active Substance: CLARITHROMYCIN
     Dosage: 1000 MILLIGRAM, QD
     Route: 048
     Dates: start: 20191125, end: 20191129
  11. DEXAMETHASONE. [Suspect]
     Active Substance: DEXAMETHASONE
     Indication: PLASMA CELL MYELOMA
     Dosage: UNK
     Route: 065
  12. AMOXICILLIN+CLAVULANIC ACID [Concomitant]
     Active Substance: AMOXICILLIN\CLAVULANIC ACID
     Indication: NOSOCOMIAL INFECTION
     Dosage: 1 GRAM, QD
     Route: 042
     Dates: start: 20191108, end: 20191111
  13. AMOXICILLIN. [Concomitant]
     Active Substance: AMOXICILLIN
     Dosage: 2 GRAM, QD
     Route: 048
     Dates: start: 20191125, end: 20191129
  14. PETHIDINE [Concomitant]
     Active Substance: MEPERIDINE
     Indication: INFUSION RELATED REACTION
     Dosage: 12.5 GRAM
     Route: 042
     Dates: start: 20191021, end: 20191021
  15. HYDROCORTISONE. [Concomitant]
     Active Substance: HYDROCORTISONE
     Indication: INFUSION RELATED REACTION
     Dosage: 100 MILLIGRAM
     Route: 042
     Dates: start: 20191021, end: 20191021
  16. HYDROCORTISONE. [Concomitant]
     Active Substance: HYDROCORTISONE
     Dosage: 100 MILLIGRAM
     Route: 042
     Dates: start: 20191022, end: 20191022
  17. LACTULOSE. [Concomitant]
     Active Substance: LACTULOSE
     Dosage: 20 MILLILITER
     Route: 048
     Dates: start: 20191127, end: 20191127
  18. AMOXICILLIN. [Concomitant]
     Active Substance: AMOXICILLIN
     Dosage: 2 GRAM, QD
     Route: 048
     Dates: start: 20191129, end: 20191205
  19. ADRENALINE                         /00003901/ [Concomitant]
     Active Substance: EPINEPHRINE
     Indication: HAEMOSTASIS
     Dosage: UNK
  20. IRON POLYMALTOSE [Concomitant]
     Active Substance: IRON POLYMALTOSE
     Dosage: UNK
  21. BACTRIM [Concomitant]
     Active Substance: SULFAMETHOXAZOLE\TRIMETHOPRIM
     Dosage: 800 MILLIGRAM
     Route: 048
     Dates: start: 20191022
  22. TAZOCIN [Concomitant]
     Active Substance: PIPERACILLIN SODIUM\TAZOBACTAM SODIUM
     Dosage: 13.5 GRAM, QD
     Route: 042
     Dates: start: 20191023, end: 20191025
  23. VITAMIN K1 [Concomitant]
     Active Substance: PHYTONADIONE
     Dosage: 10 MILLIGRAM
     Route: 042
     Dates: start: 20191021, end: 20191021
  24. VITAMIN K1 [Concomitant]
     Active Substance: PHYTONADIONE
     Dosage: 5 MILLIGRAM, QD
     Route: 048
     Dates: start: 20191023, end: 20191025
  25. PARACETAMOL [Concomitant]
     Active Substance: ACETAMINOPHEN
     Indication: PYREXIA
     Dosage: 4 GRAM, QD
     Route: 048
     Dates: start: 20191021, end: 20191023
  26. ESOMEPRAZOLE. [Concomitant]
     Active Substance: ESOMEPRAZOLE MAGNESIUM
     Dosage: 80 MILLIGRAM, QD
     Route: 042
     Dates: start: 20191125, end: 20191128
  27. CARMELLOSE [Concomitant]
     Active Substance: CARBOXYMETHYLCELLULOSE
     Indication: PROPHYLAXIS
     Dosage: 1 PERCENT
     Route: 047
     Dates: start: 20191022
  28. FENTANYL. [Concomitant]
     Active Substance: FENTANYL
     Indication: SEDATIVE THERAPY
     Dosage: 50 MICROGRAM, QD
     Route: 042
     Dates: start: 20191008, end: 20191008
  29. TEMAZEPAM. [Concomitant]
     Active Substance: TEMAZEPAM
     Indication: PROPHYLAXIS
     Dosage: 10 MILLIGRAM
     Dates: start: 20191101
  30. VALACICLOVIR [Concomitant]
     Active Substance: VALACYCLOVIR HYDROCHLORIDE
     Dosage: 500 MILLIGRAM, QD
     Route: 048
     Dates: start: 20191022
  31. MORPHINE [Concomitant]
     Active Substance: MORPHINE
     Indication: PAIN
     Dosage: 2 MILLIGRAM
     Route: 048
     Dates: start: 20191113
  32. DEXAMETHASONE. [Concomitant]
     Active Substance: DEXAMETHASONE
     Indication: PROPHYLAXIS
     Dosage: 0.4 PERCENT, QD
     Route: 047
     Dates: start: 20191021, end: 20191028
  33. PETHIDINE [Concomitant]
     Active Substance: MEPERIDINE
     Dosage: 12.5 GRAM
     Route: 042
     Dates: start: 20191022, end: 20191022
  34. GLYCERYL TRINITRATE [Concomitant]
     Active Substance: NITROGLYCERIN
     Dosage: 12.5 MILLIGRAM
     Route: 042
     Dates: start: 20191022, end: 20191022
  35. DOXYCYCLINE. [Concomitant]
     Active Substance: DOXYCYCLINE
     Indication: NOSOCOMIAL INFECTION
     Dosage: 100 MILLIGRAM, QD
     Route: 048
     Dates: start: 20191108, end: 20191118
  36. LIGNOCAINE                         /00033401/ [Concomitant]
     Active Substance: LIDOCAINE HYDROCHLORIDE
     Dosage: UNK, QD
     Route: 058
     Dates: start: 20191008, end: 20191008
  37. LORAZEPAM. [Concomitant]
     Active Substance: LORAZEPAM
     Indication: PROPHYLAXIS
     Dosage: 1 MILLIGRAM
     Route: 048
     Dates: start: 20191101
  38. AUGMENTIN DUO [Concomitant]
     Active Substance: AMOXICILLIN\CLAVULANATE POTASSIUM
     Indication: NOSOCOMIAL INFECTION
     Dosage: 1750 MILLIGRAM, QD
     Route: 048
     Dates: start: 20191112, end: 20191118
  39. ASPIRIN                            /00002701/ [Concomitant]
     Active Substance: ASPIRIN
     Dosage: 300 MILLIGRAM
     Route: 048
     Dates: start: 20191006
  40. PANTOPRAZOLE [Concomitant]
     Active Substance: PANTOPRAZOLE
     Dosage: UNK
  41. TAZOCIN [Concomitant]
     Active Substance: PIPERACILLIN SODIUM\TAZOBACTAM SODIUM
     Indication: PYREXIA
     Dosage: 4.5 GRAM
     Route: 042
     Dates: start: 20191022, end: 20191022
  42. GLYCERYL TRINITRATE [Concomitant]
     Active Substance: NITROGLYCERIN
     Indication: INFUSION RELATED REACTION
     Dosage: 25 MICROGRAM
     Route: 061
     Dates: start: 20191021, end: 20191021
  43. ESOMEPRAZOLE. [Concomitant]
     Active Substance: ESOMEPRAZOLE MAGNESIUM
     Dosage: 80 MILLIGRAM, QD
     Route: 042
     Dates: start: 20191124, end: 20191124
  44. CLARITHROMYCIN. [Concomitant]
     Active Substance: CLARITHROMYCIN
     Dosage: 500 MILLIGRAM, QD
     Route: 048
     Dates: start: 20191130, end: 20191205
  45. NEXIUM [Concomitant]
     Active Substance: ESOMEPRAZOLE MAGNESIUM
     Dosage: 80 MILLIGRAM, QD
     Route: 048
     Dates: start: 20191128, end: 20191209
  46. FLUDROCORTISONE [Concomitant]
     Active Substance: FLUDROCORTISONE
     Dosage: 100 MICROGRAM, QD
     Route: 048
     Dates: start: 20191124, end: 20191223
  47. SODIUM CHLORIDE. [Concomitant]
     Active Substance: SODIUM CHLORIDE
     Dosage: UNK

REACTIONS (1)
  - Upper gastrointestinal haemorrhage [Recovered/Resolved]

NARRATIVE: CASE EVENT DATE: 20191209
